APPROVED DRUG PRODUCT: CIPROFLOXACIN
Active Ingredient: CIPROFLOXACIN
Strength: 200MG/20ML (10MG/ML)
Dosage Form/Route: INJECTABLE;INJECTION
Application: A077782 | Product #001
Applicant: DR REDDYS LABORATORIES LTD
Approved: Aug 28, 2006 | RLD: No | RS: No | Type: DISCN